FAERS Safety Report 24393754 (Version 3)
Quarter: 2025Q2

REPORT INFORMATION
  Report Type: Spontaneous
  Country: JP (occurrence: JP)
  Receive Date: 20241003
  Receipt Date: 20250402
  Transmission Date: 20250717
  Serious: Yes (Death)
  Sender: CARA THERAPEUTICS
  Company Number: JP-CARA THERAPEUTICS, INC.-2024-00429-JP

PATIENT

DRUGS (12)
  1. KORSUVA [Suspect]
     Active Substance: DIFELIKEFALIN ACETATE
     Indication: Pruritus
     Route: 042
     Dates: start: 20240426, end: 20240729
  2. NIFEDIPINE [Concomitant]
     Active Substance: NIFEDIPINE
  3. CILNIDIPINE [Concomitant]
     Active Substance: CILNIDIPINE
  4. ENTRESTO [Concomitant]
     Active Substance: SACUBITRIL\VALSARTAN
  5. DOXAZOSIN [Concomitant]
     Active Substance: DOXAZOSIN MESYLATE
  6. BISOPROLOL FUMARATE [Concomitant]
     Active Substance: BISOPROLOL FUMARATE
  7. HEPARINOID [Concomitant]
  8. RINDERON V [Concomitant]
     Active Substance: BETAMETHASONE VALERATE
  9. BUTENAFINE HYDROCHLORIDE [Concomitant]
     Active Substance: BUTENAFINE HYDROCHLORIDE
  10. MIRCERA [Concomitant]
     Active Substance: METHOXY POLYETHYLENE GLYCOL-EPOETIN BETA
  11. OXAROL [Concomitant]
     Active Substance: MAXACALCITOL
  12. AMMONIUM GLYCYRRHIZATE [Concomitant]
     Active Substance: AMMONIUM GLYCYRRHIZATE

REACTIONS (1)
  - Cardiac failure [Fatal]

NARRATIVE: CASE EVENT DATE: 20240729
